FAERS Safety Report 20211152 (Version 1)
Quarter: 2021Q4

REPORT INFORMATION
  Report Type: Spontaneous
  Country: US (occurrence: US)
  Receive Date: 20211221
  Receipt Date: 20211221
  Transmission Date: 20220303
  Serious: No
  Sender: FDA-Public Use
  Company Number: US-PFIZER INC-202101252936

PATIENT
  Age: 65 Year
  Sex: Female
  Weight: 94.35 kg

DRUGS (2)
  1. LYRICA [Suspect]
     Active Substance: PREGABALIN
     Indication: Sacral pain
     Dosage: UNK
     Dates: start: 2011
  2. LYRICA [Suspect]
     Active Substance: PREGABALIN
     Dosage: 75 MG,2X/DAY( 12 HOURS APART )
     Route: 048
     Dates: start: 2020

REACTIONS (7)
  - Off label use [Unknown]
  - Product dose omission issue [Unknown]
  - Nightmare [Unknown]
  - Mental disorder [Unknown]
  - Nervousness [Unknown]
  - Insomnia [Unknown]
  - Pain [Unknown]

NARRATIVE: CASE EVENT DATE: 20201101
